FAERS Safety Report 18656211 (Version 1)
Quarter: 2020Q4

REPORT INFORMATION
  Report Type: Spontaneous
  Country: US (occurrence: US)
  Receive Date: 20201223
  Receipt Date: 20201223
  Transmission Date: 20210114
  Serious: Yes (Other)
  Sender: FDA-Public Use
  Company Number: US-IMPRIMIS NJOF-2103410

PATIENT

DRUGS (1)
  1. DEX-MOXI PF [Suspect]
     Active Substance: DEXAMETHASONE SODIUM PHOSPHATE\MOXIFLOXACIN HYDROCHLORIDE MONOHYDRATE
     Indication: CATARACT OPERATION
     Route: 031

REACTIONS (1)
  - Toxic anterior segment syndrome [Recovering/Resolving]
